FAERS Safety Report 5384213-0 (Version None)
Quarter: 2007Q3

REPORT INFORMATION
  Report Type: 
  Country: None (occurrence: None)
  Receive Date: 20070711
  Receipt Date: 20070703
  Transmission Date: 20080115
  Serious: Yes (Other)
  Sender: FDA-Public Use
  Company Number: B0478480A

PATIENT

DRUGS (26)
  1. ROSIGLITAZONE [Suspect]
     Indication: DIABETES MELLITUS
     Route: 048
     Dates: start: 20060501, end: 20070410
  2. AMOXICILLIN TRIHYDRATE [Concomitant]
     Dosage: 500MG THREE TIMES PER DAY
     Route: 048
  3. ASPIRIN [Concomitant]
     Dosage: 75MG PER DAY
     Route: 048
  4. BISOPROLOL [Concomitant]
     Dosage: 2.5MG UNKNOWN
     Route: 048
  5. CANESTEN HC [Concomitant]
     Dosage: 15G TWICE PER DAY
     Route: 061
  6. CERUMOL [Concomitant]
     Route: 001
  7. CHLORAMPHENICOL [Concomitant]
     Dosage: .5%DS FIVE TIMES PER DAY
     Route: 047
  8. CIPROFLOXACIN [Concomitant]
     Dosage: 100MG TWICE PER DAY
     Route: 048
  9. AMOXICILLIN + CLAVULANATE POTASSIUM [Concomitant]
     Route: 048
  10. CODEINE PHOSPHATE AND ACETAMINOPHEN [Concomitant]
     Route: 048
  11. CO-PROXAMOL [Concomitant]
     Dosage: 325MG AS REQUIRED
     Route: 048
  12. ETORICOXIB [Concomitant]
     Dosage: 60MG PER DAY
     Route: 048
  13. FERROUS SULFATE TAB [Concomitant]
     Dosage: 200MG THREE TIMES PER DAY
     Route: 048
  14. FLOXACILLIN SODIUM [Concomitant]
     Dosage: 1000MG FOUR TIMES PER DAY
     Route: 048
  15. FUROSEMIDE [Concomitant]
     Route: 048
  16. GLICLAZIDE [Concomitant]
     Dosage: 80MG UNKNOWN
     Route: 048
  17. HYDROCORTISONE [Concomitant]
     Dosage: 15MG TWICE PER DAY
     Route: 061
  18. IBUPROFEN [Concomitant]
     Dosage: 400MG THREE TIMES PER DAY
     Route: 048
  19. LEVOTHYROXINE SODIUM [Concomitant]
     Route: 048
  20. LOCORTEN-VIOFORM [Concomitant]
     Route: 001
  21. OTOSPORIN [Concomitant]
     Route: 001
  22. RAMIPRIL [Concomitant]
     Dosage: 5MG PER DAY
     Route: 048
  23. SIMVASTATIN [Concomitant]
     Dosage: 40MG PER DAY
     Route: 048
  24. TRIMOVATE [Concomitant]
     Route: 061
  25. XYLOPROCT [Concomitant]
     Route: 061
  26. TRIADCORTYL [Concomitant]
     Route: 001

REACTIONS (4)
  - CARDIAC FAILURE CONGESTIVE [None]
  - DYSPNOEA [None]
  - OEDEMA PERIPHERAL [None]
  - PLEURAL EFFUSION [None]
